FAERS Safety Report 5612344-6 (Version None)
Quarter: 2008Q1

REPORT INFORMATION
  Report Type: 
  Country: None (occurrence: None)
  Receive Date: 20080204
  Receipt Date: 20080131
  Transmission Date: 20080703
  Serious: Yes (Death)
  Sender: FDA-Public Use
  Company Number: ES-SANOFI-SYNTHELABO-F01200800159

PATIENT
  Sex: Male

DRUGS (6)
  1. OMEPRAZOLE [Concomitant]
     Dates: start: 20080103, end: 20080110
  2. DEXAMETHASONE TAB [Concomitant]
     Dates: start: 20080103, end: 20080105
  3. ONDANSETRON [Concomitant]
     Dates: start: 20080103, end: 20080105
  4. BEVACIZUMAB [Suspect]
     Route: 041
     Dates: start: 20080103, end: 20080103
  5. OXALIPLATIN [Suspect]
     Indication: RECTAL CANCER
     Route: 041
     Dates: start: 20080103, end: 20080103
  6. CAPECITABINE [Suspect]
     Dosage: FOR 14 DAYS
     Route: 048
     Dates: start: 20080103, end: 20080110

REACTIONS (1)
  - DEATH [None]
